FAERS Safety Report 21610966 (Version 3)
Quarter: 2022Q4

REPORT INFORMATION
  Report Type: Spontaneous
  Country: JP (occurrence: JP)
  Receive Date: 20221117
  Receipt Date: 20221202
  Transmission Date: 20230113
  Serious: Yes (Other)
  Sender: FDA-Public Use
  Company Number: JP-BRISTOL-MYERS SQUIBB COMPANY-2022-132561

PATIENT

DRUGS (1)
  1. ORENCIA [Suspect]
     Active Substance: ABATACEPT
     Indication: Product used for unknown indication
     Dosage: BATCH NO: ACA7391?EXPIRATION DATE: 31-AUG-2023
     Route: 058

REACTIONS (1)
  - Device malfunction [Unknown]
